FAERS Safety Report 18928756 (Version 1)
Quarter: 2021Q1

REPORT INFORMATION
  Report Type: Report from Study
  Country: None (occurrence: US)
  Receive Date: 20210223
  Receipt Date: 20210223
  Transmission Date: 20210420
  Serious: Yes (Other)
  Sender: FDA-Public Use
  Company Number: US-ABBVIE-21K-163-3781653-00

PATIENT
  Age: 47 Year
  Sex: Female

DRUGS (1)
  1. SKYRIZI [Suspect]
     Active Substance: RISANKIZUMAB-RZAA
     Indication: HODGKIN^S DISEASE
     Dosage: AT WEEK 0 AND WEEK 4
     Route: 058
     Dates: start: 20210212

REACTIONS (2)
  - Graft versus host disease in skin [Unknown]
  - Off label use [Unknown]

NARRATIVE: CASE EVENT DATE: 202102
